FAERS Safety Report 22275926 (Version 1)
Quarter: 2023Q2

REPORT INFORMATION
  Report Type: Spontaneous
  Country: US (occurrence: None)
  Receive Date: 20230501
  Receipt Date: 20230501
  Transmission Date: 20230722
  Serious: Yes (Other)
  Sender: FDA-Public Use
  Company Number: None

PATIENT
  Age: 65 Year
  Sex: Female
  Weight: 59.4 kg

DRUGS (13)
  1. RECLAST [Suspect]
     Active Substance: ZOLEDRONIC ACID
     Indication: Osteoporosis
     Dosage: FREQUENCY : EVERY YEAR;?
     Route: 042
     Dates: start: 20230421, end: 20230421
  2. SIMVASTATIN [Concomitant]
     Active Substance: SIMVASTATIN
  3. OMEPRAZOLE [Concomitant]
     Active Substance: OMEPRAZOLE
  4. WIXELA INHUB [Concomitant]
     Active Substance: FLUTICASONE PROPIONATE\SALMETEROL XINAFOATE
  5. INCRUSE ELLIPTA [Concomitant]
     Active Substance: UMECLIDINIUM BROMIDE
  6. ALBUTEROL [Concomitant]
     Active Substance: ALBUTEROL
  7. CYCLOBENZAPRINE [Concomitant]
     Active Substance: CYCLOBENZAPRINE
  8. ONDANSETRON [Concomitant]
     Active Substance: ONDANSETRON
  9. Calcium Citrate with Vit D [Concomitant]
  10. Docusate CA++ [Concomitant]
  11. VITAMINS [Concomitant]
     Active Substance: VITAMINS
  12. POLYETHYLENE GLYCOL [Concomitant]
     Active Substance: POLYETHYLENE GLYCOL
  13. MAGNESIUM OXIDE [Concomitant]
     Active Substance: MAGNESIUM OXIDE

REACTIONS (10)
  - Myocardial infarction [None]
  - Chest pain [None]
  - Inspiratory capacity abnormal [None]
  - Respiration abnormal [None]
  - Loss of personal independence in daily activities [None]
  - Muscle spasms [None]
  - Mobility decreased [None]
  - Vomiting [None]
  - Retching [None]
  - Pain [None]

NARRATIVE: CASE EVENT DATE: 20230421
